FAERS Safety Report 5958826-9 (Version None)
Quarter: 2008Q4

REPORT INFORMATION
  Report Type: 
  Country: None (occurrence: None)
  Receive Date: 20081117
  Receipt Date: 20081105
  Transmission Date: 20090506
  Serious: Yes (Hospitalization)
  Sender: FDA-Public Use
  Company Number: WAES 0807USA04472

PATIENT
  Age: 81 Year
  Sex: Male
  Weight: 65.7716 kg

DRUGS (20)
  1. CAP VORINOSTAT [Suspect]
     Indication: ACUTE MYELOID LEUKAEMIA
     Dosage: 400 MG/DAILY/PO; 400 MG/DAILY/PO; 400 MG/DAILY/PO; 400 MG/DAILY/PO 400 MG/DAILY/PO
     Route: 048
     Dates: start: 20080303, end: 20080316
  2. CAP VORINOSTAT [Suspect]
     Indication: ACUTE MYELOID LEUKAEMIA
     Dosage: 400 MG/DAILY/PO; 400 MG/DAILY/PO; 400 MG/DAILY/PO; 400 MG/DAILY/PO 400 MG/DAILY/PO
     Route: 048
     Dates: start: 20080331, end: 20080413
  3. CAP VORINOSTAT [Suspect]
     Indication: ACUTE MYELOID LEUKAEMIA
     Dosage: 400 MG/DAILY/PO; 400 MG/DAILY/PO; 400 MG/DAILY/PO; 400 MG/DAILY/PO 400 MG/DAILY/PO
     Route: 048
     Dates: start: 20080428, end: 20080511
  4. CAP VORINOSTAT [Suspect]
     Indication: ACUTE MYELOID LEUKAEMIA
     Dosage: 400 MG/DAILY/PO; 400 MG/DAILY/PO; 400 MG/DAILY/PO; 400 MG/DAILY/PO 400 MG/DAILY/PO
     Route: 048
     Dates: start: 20080605, end: 20080618
  5. CAP VORINOSTAT [Suspect]
     Indication: ACUTE MYELOID LEUKAEMIA
     Dosage: 400 MG/DAILY/PO; 400 MG/DAILY/PO; 400 MG/DAILY/PO; 400 MG/DAILY/PO 400 MG/DAILY/PO
     Route: 048
     Dates: start: 20080717, end: 20080730
  6. DECITABINE 38.2MG, 38.4 MG, 37.4 MG [Suspect]
     Indication: ACUTE MYELOID LEUKAEMIA
     Dosage: 38.2 MG/DAILY/IV; 38.2 MG/DAILY/IV; 38.4MG/DAILY/IV; 37.4 MG/DAILY/IV; 36.6 MG/DAILY/IV
     Route: 042
     Dates: start: 20080303, end: 20080307
  7. DECITABINE 38.2MG, 38.4 MG, 37.4 MG [Suspect]
     Indication: ACUTE MYELOID LEUKAEMIA
     Dosage: 38.2 MG/DAILY/IV; 38.2 MG/DAILY/IV; 38.4MG/DAILY/IV; 37.4 MG/DAILY/IV; 36.6 MG/DAILY/IV
     Route: 042
     Dates: start: 20080331, end: 20080404
  8. DECITABINE 38.2MG, 38.4 MG, 37.4 MG [Suspect]
     Indication: ACUTE MYELOID LEUKAEMIA
     Dosage: 38.2 MG/DAILY/IV; 38.2 MG/DAILY/IV; 38.4MG/DAILY/IV; 37.4 MG/DAILY/IV; 36.6 MG/DAILY/IV
     Route: 042
     Dates: start: 20080428, end: 20080502
  9. DECITABINE 38.2MG, 38.4 MG, 37.4 MG [Suspect]
     Indication: ACUTE MYELOID LEUKAEMIA
     Dosage: 38.2 MG/DAILY/IV; 38.2 MG/DAILY/IV; 38.4MG/DAILY/IV; 37.4 MG/DAILY/IV; 36.6 MG/DAILY/IV
     Route: 042
     Dates: start: 20080605, end: 20080609
  10. DECITABINE 38.2MG, 38.4 MG, 37.4 MG [Suspect]
     Indication: ACUTE MYELOID LEUKAEMIA
     Dosage: 38.2 MG/DAILY/IV; 38.2 MG/DAILY/IV; 38.4MG/DAILY/IV; 37.4 MG/DAILY/IV; 36.6 MG/DAILY/IV
     Route: 042
     Dates: start: 20080717, end: 20080721
  11. ASACOL [Concomitant]
  12. CELEXA [Concomitant]
  13. COMPAZINE [Concomitant]
  14. MEGACE [Concomitant]
  15. PROTONIX [Concomitant]
  16. TYLENOL (CAPLET) [Concomitant]
  17. UNISOM (DIPHENHYDRAMINE HYDROCHLORIDE) [Concomitant]
  18. ZOCOR [Concomitant]
  19. ACYCLOVIR [Concomitant]
  20. VITAMINS [Concomitant]

REACTIONS (16)
  - ATRIAL TACHYCARDIA [None]
  - CEREBRAL VENTRICLE DILATATION [None]
  - DEHYDRATION [None]
  - DRUG WITHDRAWAL SYNDROME [None]
  - DYSPHAGIA [None]
  - FALL [None]
  - MYOCARDIAL INFARCTION [None]
  - OESOPHAGITIS [None]
  - PNEUMONIA [None]
  - PULMONARY OEDEMA [None]
  - SIALOADENITIS [None]
  - SINUS TACHYCARDIA [None]
  - SOMNOLENCE [None]
  - SUBDURAL HAEMATOMA [None]
  - SUPRAVENTRICULAR EXTRASYSTOLES [None]
  - URINARY RETENTION [None]
